FAERS Safety Report 8849386 (Version 1)
Quarter: 2012Q4

REPORT INFORMATION
  Report Type: Spontaneous
  Country: US (occurrence: None)
  Receive Date: 20121017
  Receipt Date: 20121017
  Transmission Date: 20130627
  Serious: Yes (Death, Other)
  Sender: FDA-Public Use
  Company Number: CPI 3905

PATIENT
  Age: 14 Day
  Sex: Male
  Weight: .69 kg

DRUGS (1)
  1. IBUPROFEN [Suspect]
     Indication: PATENT DUCTUS ARTERIOSUS
     Dosage: unknown dose q24hr x3 IV
     Route: 042

REACTIONS (7)
  - Hypoxia [None]
  - Hypotension [None]
  - Pulmonary hypertension [None]
  - Tricuspid valve incompetence [None]
  - Right atrial dilatation [None]
  - Dilatation ventricular [None]
  - Right ventricular systolic pressure [None]
